FAERS Safety Report 4701191-5 (Version None)
Quarter: 2005Q2

REPORT INFORMATION
  Report Type: 
  Country: None (occurrence: None)
  Receive Date: 20050114
  Receipt Date: 20050114
  Transmission Date: 20051028
  Serious: Yes (Other)
  Sender: FDA-Public Use
  Company Number: None

PATIENT
  Age: 50 Year
  Sex: Female
  Weight: 77.1115 kg

DRUGS (2)
  1. ATENOLOL [Suspect]
     Indication: HYPERTENSION
     Dosage: 50 MG HS PO
     Route: 048
     Dates: start: 20000601
  2. ACETAMINOPHEN AND CODEINE PHOSPHATE [Suspect]
     Indication: ARTHRITIS
     Dosage: 1 TAB AT BEDTIME -PRN PO
     Route: 048
     Dates: start: 20000601

REACTIONS (1)
  - RASH PRURITIC [None]
